FAERS Safety Report 17461137 (Version 1)
Quarter: 2020Q1

REPORT INFORMATION
  Report Type: Spontaneous
  Country: US (occurrence: US)
  Receive Date: 20200213
  Receipt Date: 20200213
  Transmission Date: 20200409
  Serious: Yes (Disabling)
  Sender: FDA-Public Use
  Company Number: None

PATIENT
  Age: 62 Year
  Sex: Male
  Weight: 117.03 kg

DRUGS (1)
  1. XIIDRA [Suspect]
     Active Substance: LIFITEGRAST
     Indication: DRY EYE
     Route: 031
     Dates: start: 201903

REACTIONS (4)
  - Eye disorder [None]
  - Eye discharge [None]
  - Eye haemorrhage [None]
  - Eyelid disorder [None]

NARRATIVE: CASE EVENT DATE: 20190801
